FAERS Safety Report 14417148 (Version 1)
Quarter: 2018Q1

REPORT INFORMATION
  Report Type: Spontaneous
  Country: ES (occurrence: ES)
  Receive Date: 20180122
  Receipt Date: 20180122
  Transmission Date: 20180509
  Serious: Yes (Other)
  Sender: FDA-Public Use
  Company Number: PHHY2009ES075251

PATIENT
  Age: 45 Year
  Sex: Male

DRUGS (3)
  1. VIREAD [Interacting]
     Active Substance: TENOFOVIR DISOPROXIL FUMARATE
     Indication: HIV INFECTION CDC CATEGORY A
     Route: 065
  2. OMEPRAZOLE. [Suspect]
     Active Substance: OMEPRAZOLE
     Indication: DYSPEPSIA
     Dosage: UNK
     Route: 065
  3. EMTRIVA [Interacting]
     Active Substance: EMTRICITABINE
     Indication: HIV INFECTION CDC CATEGORY A
     Route: 065

REACTIONS (3)
  - Inhibitory drug interaction [Unknown]
  - Blood HIV RNA increased [Recovered/Resolved]
  - Drug interaction [Unknown]
